FAERS Safety Report 25433168 (Version 6)
Quarter: 2025Q4

REPORT INFORMATION
  Report Type: Spontaneous
  Country: US (occurrence: US)
  Receive Date: 20250613
  Receipt Date: 20251006
  Transmission Date: 20260118
  Serious: Yes (Hospitalization, Other)
  Sender: PFIZER
  Company Number: US-PFIZER INC-202500041518

PATIENT
  Age: 66 Year
  Sex: Female
  Weight: 77.11 kg

DRUGS (10)
  1. MEKTOVI [Suspect]
     Active Substance: BINIMETINIB
     Indication: Lung carcinoma cell type unspecified stage IV
     Dosage: 45MG TABLETS BID (TWICE A DAY)
     Route: 048
     Dates: start: 20250220
  2. BRAFTOVI [Suspect]
     Active Substance: ENCORAFENIB
     Indication: Lung carcinoma cell type unspecified stage IV
     Dosage: 150 MG, 1X/DAY (FOR 7 DAYS)
     Route: 048
     Dates: start: 20250220
  3. BRAFTOVI [Suspect]
     Active Substance: ENCORAFENIB
     Dosage: 300 MG, 1X/DAY (FOR 7 DAYS)
     Route: 048
  4. BRAFTOVI [Suspect]
     Active Substance: ENCORAFENIB
     Dosage: 450MG CAPSULES QD (ONCE A DAY)
     Route: 048
  5. ELIQUIS [Suspect]
     Active Substance: APIXABAN
     Indication: Heart rate
     Dosage: 5 MG BID
     Dates: start: 20240914
  6. ELIQUIS [Suspect]
     Active Substance: APIXABAN
     Indication: Deep vein thrombosis
     Dosage: 2.5 MG BID
     Dates: start: 202411, end: 20241223
  7. ELIQUIS [Suspect]
     Active Substance: APIXABAN
     Dosage: 5 MG BID
     Dates: start: 20250129, end: 20250226
  8. NPLATE [Concomitant]
     Active Substance: ROMIPLOSTIM
     Indication: Thrombocytopenia
     Dosage: DOSE BASED ON PLATELET
  9. AMLODIPINE [Concomitant]
     Active Substance: AMLODIPINE BESYLATE
     Indication: Hypertension
     Dosage: 2.5 MG, 2X/DAY
  10. ALBUTEROL [Concomitant]
     Active Substance: ALBUTEROL
     Dosage: PRN (INHALER)

REACTIONS (13)
  - Pain [Recovered/Resolved with Sequelae]
  - Gangrene [Not Recovered/Not Resolved]
  - Coronary artery thrombosis [Unknown]
  - Thrombosis [Unknown]
  - Loss of consciousness [Unknown]
  - Malignant neoplasm progression [Unknown]
  - Lung carcinoma cell type unspecified stage IV [Unknown]
  - Thrombocytopenia [Unknown]
  - Gangrene [Not Recovered/Not Resolved]
  - Peripheral artery thrombosis [Recovered/Resolved with Sequelae]
  - Lung disorder [Unknown]
  - Off label use [Unknown]
  - Off label use [Unknown]

NARRATIVE: CASE EVENT DATE: 20250103
